FAERS Safety Report 6235397-3 (Version None)
Quarter: 2009Q2

REPORT INFORMATION
  Report Type: 
  Country: None (occurrence: None)
  Receive Date: 20090618
  Receipt Date: 20081217
  Transmission Date: 20091009
  Serious: No
  Sender: FDA-Public Use
  Company Number: US-ASTRAZENECA-2008UW28287

PATIENT
  Age: 64 Year
  Sex: Female
  Weight: 65.8 kg

DRUGS (6)
  1. ENTOCORT EC [Suspect]
     Indication: COELIAC DISEASE
     Route: 048
     Dates: start: 20070901, end: 20081001
  2. ENTOCORT EC [Suspect]
     Route: 048
     Dates: start: 20081001, end: 20081001
  3. ENTOCORT EC [Suspect]
     Route: 048
     Dates: start: 20081026
  4. FOLIC ACID [Concomitant]
  5. ZINC [Concomitant]
  6. MULTI-VITAMIN [Concomitant]

REACTIONS (2)
  - ARTHRALGIA [None]
  - JOINT SWELLING [None]
